FAERS Safety Report 10190280 (Version 1)
Quarter: 2014Q2

REPORT INFORMATION
  Report Type: Spontaneous
  Country: US (occurrence: US)
  Receive Date: 20140522
  Receipt Date: 20140522
  Transmission Date: 20141212
  Serious: Yes (Death)
  Sender: FDA-Public Use
  Company Number: US-MPIJNJ-2014MPI001503

PATIENT
  Sex: 0

DRUGS (1)
  1. VELCADE [Suspect]
     Indication: AUTOIMMUNE PANCYTOPENIA
     Dosage: 1.3 MG/M2, TOTAL OF 4 DOSES 72 HOURS APART

REACTIONS (2)
  - Lung disorder [Fatal]
  - Therapeutic response changed [Unknown]
